FAERS Safety Report 8180576-1 (Version None)
Quarter: 2012Q1

REPORT INFORMATION
  Report Type: 
  Country: None (occurrence: None)
  Receive Date: 20120302
  Receipt Date: 20120221
  Transmission Date: 20120608
  Serious: Yes (Hospitalization, Other)
  Sender: FDA-Public Use
  Company Number: AU-FRI-1000028405

PATIENT
  Sex: Male

DRUGS (9)
  1. TOPAMAX [Suspect]
  2. CITALOPRAM HYDROBROMIDE [Suspect]
     Indication: DEPRESSION
     Dosage: 50 MG
     Route: 048
     Dates: start: 20120114
  3. CLONAZEPAM [Suspect]
     Dates: start: 20120114
  4. VALPROATE SODIUM [Suspect]
  5. VIMPAT [Suspect]
     Dosage: 50 MG
     Route: 048
  6. LAMOTRIGINE [Suspect]
  7. ANTIDEPRESSANTS [Suspect]
     Indication: DEPRESSION
     Dates: start: 20120114
  8. VIMPAT [Suspect]
     Indication: COMPLEX PARTIAL SEIZURES
     Dosage: 100 MG
     Route: 048
     Dates: start: 20111101
  9. VIMPAT [Suspect]
     Dosage: 25 MG
     Route: 048
     Dates: end: 20120114

REACTIONS (4)
  - INTENTIONAL OVERDOSE [None]
  - PATHOLOGICAL GAMBLING [None]
  - SUICIDE ATTEMPT [None]
  - DRUG INTERACTION [None]
